FAERS Safety Report 14389652 (Version 3)
Quarter: 2019Q3

REPORT INFORMATION
  Report Type: Spontaneous
  Country: US (occurrence: US)
  Receive Date: 20180115
  Receipt Date: 20190709
  Transmission Date: 20191004
  Serious: Yes (Other)
  Sender: FDA-Public Use
  Company Number: US-SA-2016SA103300

PATIENT
  Age: 39 Year
  Sex: Female
  Weight: 62.14 kg

DRUGS (4)
  1. TAXOTERE [Suspect]
     Active Substance: DOCETAXEL
     Dosage: 171 MG, QW
     Route: 042
     Dates: start: 20121218, end: 20121218
  2. TAXOTERE [Suspect]
     Active Substance: DOCETAXEL
     Indication: BREAST CANCER FEMALE
     Dosage: 171 MG, QW
     Route: 042
     Dates: start: 20121016, end: 20121016
  3. LISINOPRIL. [Concomitant]
     Active Substance: LISINOPRIL
     Indication: CHEMOTHERAPY
     Dosage: UNK UNK,UNK
     Route: 065
     Dates: start: 20121011
  4. SIMVASTATIN. [Concomitant]
     Active Substance: SIMVASTATIN
     Dosage: UNK
     Dates: start: 20121011

REACTIONS (6)
  - Impaired quality of life [Unknown]
  - Pain [Unknown]
  - Anxiety [Unknown]
  - Emotional distress [Unknown]
  - Alopecia [Recovering/Resolving]
  - Psychological trauma [Unknown]

NARRATIVE: CASE EVENT DATE: 20121116
